FAERS Safety Report 6934452-X (Version None)
Quarter: 2010Q3

REPORT INFORMATION
  Report Type: 
  Country: None (occurrence: None)
  Receive Date: 20100820
  Receipt Date: 20100816
  Transmission Date: 20110219
  Serious: Yes (Other)
  Sender: FDA-Public Use
  Company Number: US-ELI_LILLY_AND_COMPANY-US201008004691

PATIENT
  Sex: Male
  Weight: 84.354 kg

DRUGS (5)
  1. HUMALOG [Suspect]
     Indication: TYPE 2 DIABETES MELLITUS
     Dosage: 26 U, EACH MORNING
  2. HUMALOG [Suspect]
     Dosage: 34 U, OTHER
  3. HUMALOG [Suspect]
     Dosage: 34 U, EACH EVENING
  4. HUMALOG [Suspect]
     Dosage: UNK, AS NEEDED
  5. LANTUS [Concomitant]

REACTIONS (7)
  - ARTHRALGIA [None]
  - BACK PAIN [None]
  - DEAFNESS [None]
  - IMPLANTABLE DEFIBRILLATOR INSERTION [None]
  - INCORRECT DOSE ADMINISTERED [None]
  - LYMPHOMA [None]
  - WEIGHT INCREASED [None]
